FAERS Safety Report 8263354-4 (Version None)
Quarter: 2012Q1

REPORT INFORMATION
  Report Type: 
  Country: None (occurrence: None)
  Receive Date: 20120327
  Receipt Date: 20100602
  Transmission Date: 20120608
  Serious: Yes (Other)
  Sender: FDA-Public Use
  Company Number: PHHY2010US17765

PATIENT
  Age: 52 Year
  Sex: Male
  Weight: 108.8 kg

DRUGS (11)
  1. CARVEDILOL [Concomitant]
  2. RAMIPRIL [Concomitant]
  3. ASPIRIN [Concomitant]
  4. PLAVIX [Concomitant]
  5. COREG [Concomitant]
  6. ALTACE [Concomitant]
  7. GLEEVEC [Suspect]
     Indication: CHRONIC MYELOID LEUKAEMIA
     Dosage: 400 MG, DAILY, ORAL
     Route: 048
     Dates: start: 20100202, end: 20100424
  8. LYRICA [Concomitant]
  9. GLIPIZIDE [Concomitant]
  10. ASPIRIN [Concomitant]
  11. CRESTOR [Concomitant]

REACTIONS (3)
  - FLUID RETENTION [None]
  - OEDEMA [None]
  - WEIGHT INCREASED [None]
